FAERS Safety Report 7058594-6 (Version None)
Quarter: 2010Q4

REPORT INFORMATION
  Report Type: 
  Country: None (occurrence: None)
  Receive Date: 20101022
  Receipt Date: 20101014
  Transmission Date: 20110411
  Serious: Yes (Congenital Anomaly)
  Sender: FDA-Public Use
  Company Number: A0887931A

PATIENT

DRUGS (3)
  1. ZIDOVUDINE [Suspect]
     Indication: ANTIVIRAL TREATMENT
  2. PREZISTA [Suspect]
     Indication: ANTIVIRAL TREATMENT
     Dosage: 1200MGD PER DAY
  3. ISENTRESS [Suspect]
     Indication: ANTIVIRAL TREATMENT
     Dosage: 800MGD PER DAY

REACTIONS (2)
  - CONGENITAL ANOMALY [None]
  - DRUG EXPOSURE DURING PREGNANCY [None]
